FAERS Safety Report 7061787-5 (Version None)
Quarter: 2010Q4

REPORT INFORMATION
  Report Type: 
  Country: None (occurrence: None)
  Receive Date: 20101026
  Receipt Date: 20101020
  Transmission Date: 20110411
  Serious: Yes (Death)
  Sender: FDA-Public Use
  Company Number: CA-ROCHE-735027

PATIENT
  Age: 58 Year
  Sex: Female

DRUGS (2)
  1. RIVOTRIL [Suspect]
     Indication: PRODUCT USED FOR UNKNOWN INDICATION
     Dosage: FREQUENCY: ONCE, ROUTE: INTRAVENOUS (NOS)
     Route: 065
  2. VALIUM [Suspect]
     Indication: PRODUCT USED FOR UNKNOWN INDICATION
     Dosage: FREQUENCY: ONCE
     Route: 065

REACTIONS (4)
  - BRAIN OEDEMA [None]
  - DISEASE PROGRESSION [None]
  - DRUG INEFFECTIVE [None]
  - SUBARACHNOID HAEMORRHAGE [None]
